FAERS Safety Report 9276109 (Version 1)
Quarter: 2013Q2

REPORT INFORMATION
  Report Type: Spontaneous
  Country: IT (occurrence: IT)
  Receive Date: 20130507
  Receipt Date: 20130507
  Transmission Date: 20140414
  Serious: Yes (Hospitalization)
  Sender: FDA-Public Use
  Company Number: IT-PFIZER INC-2013138341

PATIENT
  Age: 3 Year
  Sex: Male

DRUGS (1)
  1. ZITROMAX [Suspect]
     Indication: BRONCHITIS
     Dosage: 400 MG, 1X/DAY
     Route: 048
     Dates: start: 20130414

REACTIONS (4)
  - Incorrect dose administered [Unknown]
  - Nausea [Recovered/Resolved]
  - Renal function test abnormal [Recovered/Resolved]
  - Liver function test abnormal [Recovered/Resolved]
